FAERS Safety Report 21415369 (Version 1)
Quarter: 2022Q4

REPORT INFORMATION
  Report Type: Spontaneous
  Country: US (occurrence: None)
  Receive Date: 20221005
  Receipt Date: 20221005
  Transmission Date: 20230112
  Serious: Yes (Death)
  Sender: FDA-Public Use
  Company Number: None

PATIENT
  Age: 987 Year
  Sex: Female
  Weight: 46.9 kg

DRUGS (1)
  1. ANASTROZOLE [Suspect]
     Active Substance: ANASTROZOLE
     Dates: end: 20150908

REACTIONS (1)
  - Death [None]

NARRATIVE: CASE EVENT DATE: 20221001
